FAERS Safety Report 17515363 (Version 1)
Quarter: 2020Q1

REPORT INFORMATION
  Report Type: Spontaneous
  Country: US (occurrence: US)
  Receive Date: 20200309
  Receipt Date: 20200309
  Transmission Date: 20200409
  Serious: Yes (Hospitalization, Other)
  Sender: FDA-Public Use
  Company Number: US-GLAXOSMITHKLINE-US2020GSK038179

PATIENT
  Sex: Male

DRUGS (7)
  1. PREVACID [Suspect]
     Active Substance: LANSOPRAZOLE
     Indication: GASTROOESOPHAGEAL REFLUX DISEASE
  2. PANTOPRAZOLE [Suspect]
     Active Substance: PANTOPRAZOLE
     Indication: DYSPEPSIA
     Dosage: 20 MG, QD
     Route: 065
     Dates: start: 2017, end: 2018
  3. PANTOPRAZOLE [Suspect]
     Active Substance: PANTOPRAZOLE
     Indication: PRODUCT USED FOR UNKNOWN INDICATION
     Dosage: 20 MG
     Route: 065
     Dates: start: 20191227
  4. PREVACID [Suspect]
     Active Substance: LANSOPRAZOLE
     Indication: DYSPEPSIA
     Dosage: 15 MG, QD
     Route: 065
     Dates: start: 2017, end: 2018
  5. PANTOPRAZOLE [Suspect]
     Active Substance: PANTOPRAZOLE
     Indication: GASTROOESOPHAGEAL REFLUX DISEASE
     Dosage: 10 MG, BID
     Route: 065
  6. PANTOPRAZOLE [Suspect]
     Active Substance: PANTOPRAZOLE
     Dosage: 40 MG, BID
     Route: 065
  7. OMEPRAZOLE. [Suspect]
     Active Substance: OMEPRAZOLE
     Indication: PRODUCT USED FOR UNKNOWN INDICATION
     Dosage: 20 MG, BID
     Route: 065

REACTIONS (35)
  - Hypertensive nephropathy [Unknown]
  - Chronic kidney disease [Unknown]
  - Urinary bladder haemorrhage [Unknown]
  - Glomerulonephritis rapidly progressive [Unknown]
  - Kidney fibrosis [Unknown]
  - Tubulointerstitial nephritis [Unknown]
  - Renal tubular necrosis [Unknown]
  - Renal tubular atrophy [Unknown]
  - Proteinuria [Unknown]
  - Dysuria [Unknown]
  - Haemorrhage urinary tract [Unknown]
  - Renal impairment [Unknown]
  - Dialysis [Not Recovered/Not Resolved]
  - Renal transplant [Unknown]
  - Urinary hesitation [Unknown]
  - Glomerulosclerosis [Unknown]
  - End stage renal disease [Unknown]
  - IgA nephropathy [Unknown]
  - Nephropathy [Unknown]
  - Pollakiuria [Unknown]
  - Acute kidney injury [Unknown]
  - Renal failure [Unknown]
  - Renal disorder [Unknown]
  - Bladder hypertrophy [Unknown]
  - Device dependence [Unknown]
  - Nephrogenic anaemia [Unknown]
  - Urinary retention [Unknown]
  - Bladder dilatation [Unknown]
  - Polyuria [Unknown]
  - Haematuria [Unknown]
  - Nephrosclerosis [Unknown]
  - Renal hypertension [Unknown]
  - Renal tubular injury [Unknown]
  - Haemodialysis [Unknown]
  - Peritoneal dialysis [Unknown]
